FAERS Safety Report 13693345 (Version 1)
Quarter: 2017Q2

REPORT INFORMATION
  Report Type: Spontaneous
  Country: US (occurrence: US)
  Receive Date: 20170626
  Receipt Date: 20170626
  Transmission Date: 20170830
  Serious: Yes (Life-Threatening, Disabling)
  Sender: FDA-Public Use
  Company Number: None

PATIENT
  Age: 40 Year
  Sex: Female
  Weight: 96.75 kg

DRUGS (10)
  1. KLONOPIN [Concomitant]
     Active Substance: CLONAZEPAM
  2. VITAMIN [Concomitant]
     Active Substance: VITAMINS
  3. CLONAZEPAM. [Suspect]
     Active Substance: CLONAZEPAM
     Indication: ANXIETY
     Route: 048
  4. TRAZODONE [Concomitant]
     Active Substance: TRAZODONE HYDROCHLORIDE
  5. EFFEXOR XR EXTENDED-RELEASE [Concomitant]
     Active Substance: VENLAFAXINE HYDROCHLORIDE
  6. PROAIR HFA [Concomitant]
     Active Substance: ALBUTEROL SULFATE
  7. AMBIEN [Concomitant]
     Active Substance: ZOLPIDEM TARTRATE
  8. IBUPROFEN. [Concomitant]
     Active Substance: IBUPROFEN
  9. VICODIN [Concomitant]
     Active Substance: ACETAMINOPHEN\HYDROCODONE BITARTRATE
  10. HYSINGLA ER [Concomitant]
     Active Substance: HYDROCODONE BITARTRATE

REACTIONS (17)
  - Decreased appetite [None]
  - Weight decreased [None]
  - Feeling abnormal [None]
  - Myalgia [None]
  - Tremor [None]
  - Cognitive disorder [None]
  - Hypersensitivity [None]
  - Drug ineffective [None]
  - Dysphemia [None]
  - Tic [None]
  - Aphasia [None]
  - Psychomotor hyperactivity [None]
  - Hypoaesthesia [None]
  - Gait disturbance [None]
  - Hypoaesthesia oral [None]
  - Paraesthesia [None]
  - Blood pressure increased [None]

NARRATIVE: CASE EVENT DATE: 20141014
